FAERS Safety Report 4655267-1 (Version None)
Quarter: 2005Q2

REPORT INFORMATION
  Report Type: 
  Country: None (occurrence: None)
  Receive Date: 20050506
  Receipt Date: 20050426
  Transmission Date: 20051028
  Serious: Yes (Hospitalization)
  Sender: FDA-Public Use
  Company Number: FR-JNJFOC-20050303344

PATIENT
  Sex: Male

DRUGS (1)
  1. RISPERDAL [Suspect]
     Indication: AUTISM
     Route: 049

REACTIONS (5)
  - CONVERSION DISORDER [None]
  - CONVULSION [None]
  - HYPONATRAEMIA [None]
  - LOCKED-IN SYNDROME [None]
  - POLYDIPSIA [None]
